FAERS Safety Report 8241537-7 (Version None)
Quarter: 2012Q1

REPORT INFORMATION
  Report Type: 
  Country: None (occurrence: None)
  Receive Date: 20120328
  Receipt Date: 20111024
  Transmission Date: 20120608
  Serious: No
  Sender: FDA-Public Use
  Company Number: US-COVIDIEN/TYCO HEALTHCARE/MALLINCKRODT-T201102512

PATIENT
  Sex: Female

DRUGS (5)
  1. VALIUM [Concomitant]
     Indication: ANXIETY
     Dosage: 10 MG, BID
     Route: 048
  2. DILAUDID [Concomitant]
     Indication: PAIN
     Dosage: 4 MG, 3 TABLETS TID PRN
     Route: 048
  3. METHADONE HCL [Suspect]
     Indication: PAIN
     Dosage: 20 MG  TID
     Dates: start: 20111001
  4. THYROID THERAPY [Concomitant]
     Indication: THYROID DISORDER
     Dosage: UNK, QD
  5. METHADONE HCL [Suspect]
     Dosage: 50 MG TID

REACTIONS (3)
  - MUSCLE SPASMS [None]
  - TOOTH EROSION [None]
  - TREMOR [None]
